FAERS Safety Report 7305574-9 (Version None)
Quarter: 2011Q1

REPORT INFORMATION
  Report Type: 
  Country: None (occurrence: None)
  Receive Date: 20110222
  Receipt Date: 20110215
  Transmission Date: 20110831
  Serious: Yes (Other)
  Sender: FDA-Public Use
  Company Number: US-SANOFI-AVENTIS-2010SA006737

PATIENT
  Age: 61 Year
  Sex: Male
  Weight: 122 kg

DRUGS (10)
  1. PLAVIX [Concomitant]
  2. ALL OTHER THERAPEUTIC PRODUCTS [Concomitant]
  3. LIPITOR [Concomitant]
     Route: 065
     Dates: start: 20080101
  4. OPTICLICK [Suspect]
  5. LANTUS [Suspect]
     Dosage: DOSE:50 UNIT(S)
     Route: 058
  6. VIAGRA [Concomitant]
     Route: 065
  7. ALL OTHER THERAPEUTIC PRODUCTS [Concomitant]
  8. GLIMEPIRIDE [Concomitant]
  9. APIDRA [Suspect]
     Dosage: DOSE:25 UNIT(S)
     Route: 065
  10. ATENOLOL [Concomitant]

REACTIONS (1)
  - CATARACT OPERATION [None]
